FAERS Safety Report 6902486-7 (Version None)
Quarter: 2010Q3

REPORT INFORMATION
  Report Type: 
  Country: None (occurrence: None)
  Receive Date: 20100802
  Receipt Date: 20100802
  Transmission Date: 20110219
  Serious: No
  Sender: FDA-Public Use
  Company Number: None

PATIENT
  Age: 22 Year
  Sex: Female
  Weight: 59.4212 kg

DRUGS (1)
  1. ZICAM NASAL GEL [Suspect]
     Indication: NASAL CONGESTION
     Dates: start: 20100728, end: 20100728

REACTIONS (4)
  - AGEUSIA [None]
  - ANOSMIA [None]
  - BURNING SENSATION [None]
  - PAIN [None]
